FAERS Safety Report 10453896 (Version 4)
Quarter: 2015Q4

REPORT INFORMATION
  Report Type: Spontaneous
  Country: US (occurrence: US)
  Receive Date: 20140915
  Receipt Date: 20151117
  Transmission Date: 20160304
  Serious: Yes (Other)
  Sender: FDA-Public Use
  Company Number: US-BAYER-2014-137317

PATIENT
  Age: 36 Year
  Sex: Female
  Weight: 71.66 kg

DRUGS (1)
  1. MIRENA [Suspect]
     Active Substance: LEVONORGESTREL
     Indication: CONTRACEPTION
     Dosage: 20 MCG/24HR, CONT
     Route: 015
     Dates: start: 20120305, end: 20150225

REACTIONS (11)
  - Premature labour [None]
  - Device dislocation [None]
  - Breast tenderness [None]
  - Drug ineffective [None]
  - Haemorrhage in pregnancy [None]
  - Device dislocation [None]
  - Pregnancy with contraceptive device [None]
  - Nausea [None]
  - Fatigue [None]
  - Premature rupture of membranes [None]
  - Device difficult to use [None]

NARRATIVE: CASE EVENT DATE: 201406
